FAERS Safety Report 4436472-6 (Version None)
Quarter: 2004Q3

REPORT INFORMATION
  Report Type: 
  Country: None (occurrence: None)
  Receive Date: 20040830
  Receipt Date: 20040517
  Transmission Date: 20050211
  Serious: Yes (Other)
  Sender: FDA-Public Use
  Company Number: US-BRISTOL-MYERS SQUIBB COMPANY-12595500

PATIENT
  Age: 12 Year
  Sex: Male

DRUGS (6)
  1. ABILIFY [Suspect]
     Indication: ABNORMAL BEHAVIOUR
     Route: 048
     Dates: start: 20031218, end: 20031222
  2. ABILIFY [Suspect]
     Indication: AFFECTIVE DISORDER
     Route: 048
     Dates: start: 20031218, end: 20031222
  3. ABILIFY [Suspect]
     Indication: IMPULSE-CONTROL DISORDER
     Route: 048
     Dates: start: 20031218, end: 20031222
  4. GABITRIL [Concomitant]
  5. CLONIDINE HCL [Concomitant]
  6. WELLBUTRIN SR [Concomitant]

REACTIONS (1)
  - EXTRAPYRAMIDAL DISORDER [None]
